FAERS Safety Report 19135671 (Version 1)
Quarter: 2021Q2

REPORT INFORMATION
  Report Type: Spontaneous
  Country: US (occurrence: US)
  Receive Date: 20210414
  Receipt Date: 20210414
  Transmission Date: 20210717
  Serious: No
  Sender: FDA-Public Use
  Company Number: US-NEXGEN PHARMA, INC.-2109331

PATIENT
  Age: 17 Year
  Sex: Male

DRUGS (1)
  1. CHENODAL [Suspect]
     Active Substance: CHENODIOL
     Indication: BODY FAT DISORDER
     Route: 048
     Dates: start: 20200527

REACTIONS (1)
  - Wisdom teeth removal [Recovering/Resolving]

NARRATIVE: CASE EVENT DATE: 20210319
